FAERS Safety Report 10434068 (Version 2)
Quarter: 2014Q3

REPORT INFORMATION
  Report Type: Spontaneous
  Country: GB (occurrence: GB)
  Receive Date: 20140905
  Receipt Date: 20140918
  Transmission Date: 20150326
  Serious: Yes (Other)
  Sender: FDA-Public Use
  Company Number: GB-WATSON-2014-19169

PATIENT
  Age: 28 Year
  Sex: Female

DRUGS (1)
  1. CIPROFLOXACIN HYDROCHLORIDE (UNKNOWN) [Suspect]
     Active Substance: CIPROFLOXACIN HYDROCHLORIDE
     Indication: URINARY TRACT INFECTION
     Dosage: UNK
     Route: 048
     Dates: start: 201001, end: 20100219

REACTIONS (43)
  - Adrenal disorder [Recovering/Resolving]
  - Drug hypersensitivity [Recovering/Resolving]
  - Muscle atrophy [Recovering/Resolving]
  - Anxiety [Recovering/Resolving]
  - Dissociation [Recovering/Resolving]
  - Urine output increased [Recovering/Resolving]
  - Multiple allergies [Recovering/Resolving]
  - Alopecia [Recovering/Resolving]
  - Hunger [Recovering/Resolving]
  - Food intolerance [Recovering/Resolving]
  - Perfume sensitivity [Recovering/Resolving]
  - Blood glucose abnormal [Recovering/Resolving]
  - Cystitis interstitial [Recovering/Resolving]
  - Diarrhoea [Recovering/Resolving]
  - Dark circles under eyes [Recovering/Resolving]
  - Post viral fatigue syndrome [Unknown]
  - Insomnia [Recovering/Resolving]
  - Back disorder [Recovering/Resolving]
  - Glucose tolerance impaired [Recovering/Resolving]
  - Fatigue [Recovering/Resolving]
  - Thirst [Recovering/Resolving]
  - Acne [Unknown]
  - Cow^s milk intolerance [Recovering/Resolving]
  - Dyspnoea [Recovering/Resolving]
  - Weight decreased [Recovering/Resolving]
  - Urinary tract infection [Recovering/Resolving]
  - Palpitations [Recovering/Resolving]
  - Adverse drug reaction [Recovering/Resolving]
  - Arthralgia [Unknown]
  - Ulcer [Recovering/Resolving]
  - Toxicity to various agents [Recovering/Resolving]
  - Dizziness [Recovering/Resolving]
  - Memory impairment [Recovering/Resolving]
  - Irritable bowel syndrome [Recovering/Resolving]
  - Nausea [Recovering/Resolving]
  - Dyspepsia [Recovering/Resolving]
  - Adjustment disorder [Recovering/Resolving]
  - Tinnitus [Recovering/Resolving]
  - Urethral stenosis [Unknown]
  - Anhedonia [Recovering/Resolving]
  - Depression [Recovering/Resolving]
  - Gastritis [Recovering/Resolving]
  - Quality of life decreased [Recovering/Resolving]
